FAERS Safety Report 11982988 (Version 2)
Quarter: 2016Q4

REPORT INFORMATION
  Report Type: Spontaneous
  Country: US (occurrence: US)
  Receive Date: 20160201
  Receipt Date: 20161102
  Transmission Date: 20170206
  Serious: Yes (Other)
  Sender: FDA-Public Use
  Company Number: US-PFIZER INC-2016035530

PATIENT
  Age: 24 Year
  Sex: Female

DRUGS (2)
  1. LATANOPROST. [Suspect]
     Active Substance: LATANOPROST
     Dosage: UNK UNK, 1X/DAY (AT NIGHT)
     Dates: start: 2015
  2. COMBIGAN [Concomitant]
     Active Substance: BRIMONIDINE TARTRATE\TIMOLOL MALEATE
     Dosage: UNK, 1X/DAY (DURING THE DAY)

REACTIONS (3)
  - Glaucoma [Not Recovered/Not Resolved]
  - Eye irritation [Unknown]
  - Condition aggravated [Not Recovered/Not Resolved]
